FAERS Safety Report 19433838 (Version 5)
Quarter: 2021Q3

REPORT INFORMATION
  Report Type: Spontaneous
  Country: US (occurrence: US)
  Receive Date: 20210618
  Receipt Date: 20210925
  Transmission Date: 20211014
  Serious: No
  Sender: FDA-Public Use
  Company Number: US-SA-2021SA200197

PATIENT
  Age: 57 Year
  Sex: Female

DRUGS (13)
  1. FLONASE [Concomitant]
     Active Substance: FLUTICASONE PROPIONATE
  2. ALBUTEROL SULFATE HFA [Concomitant]
     Active Substance: ALBUTEROL SULFATE
  3. FLUTICASONE. [Concomitant]
     Active Substance: FLUTICASONE
  4. BIAXIN [Concomitant]
     Active Substance: CLARITHROMYCIN
     Indication: NASAL POLYPS
  5. LINZESS [Concomitant]
     Active Substance: LINACLOTIDE
  6. DUPIXENT [Suspect]
     Active Substance: DUPILUMAB
     Indication: ASTHMA
     Dosage: 300 MG, QOW
     Route: 058
     Dates: start: 202105
  7. XHANCE [Concomitant]
     Active Substance: FLUTICASONE PROPIONATE
  8. PROAIR HFA [Concomitant]
     Active Substance: ALBUTEROL SULFATE
  9. COLCHICINE. [Concomitant]
     Active Substance: COLCHICINE
  10. ALLOPURINOL. [Concomitant]
     Active Substance: ALLOPURINOL
  11. CLONAZEPAM. [Concomitant]
     Active Substance: CLONAZEPAM
  12. SPIRIVA [Concomitant]
     Active Substance: TIOTROPIUM BROMIDE MONOHYDRATE
  13. DUPIXENT [Suspect]
     Active Substance: DUPILUMAB
     Indication: NASAL POLYPS

REACTIONS (5)
  - Wrong technique in product usage process [Recovered/Resolved]
  - Rash macular [Unknown]
  - Injection site swelling [Recovered/Resolved]
  - Product use issue [Unknown]
  - Incorrect drug administration rate [Recovered/Resolved]

NARRATIVE: CASE EVENT DATE: 202105
